FAERS Safety Report 5662506-7 (Version None)
Quarter: 2008Q1

REPORT INFORMATION
  Report Type: 
  Country: None (occurrence: None)
  Receive Date: 20080313
  Receipt Date: 20080303
  Transmission Date: 20080703
  Serious: Yes (Other)
  Sender: FDA-Public Use
  Company Number: JP-JNJFOC-20080301792

PATIENT
  Age: 45 Year
  Sex: Male

DRUGS (3)
  1. ITRIZOLE [Suspect]
     Indication: ONYCHOMYCOSIS
     Route: 048
  2. PREDNISOLONE [Concomitant]
     Indication: UVEITIS
     Route: 048
  3. FRADIOMYCIN SULFATE_BETAMETHASONE SODIUM PHOSPHATE [Concomitant]
     Indication: UVEITIS
     Route: 047

REACTIONS (1)
  - GLAUCOMA [None]
